FAERS Safety Report 5811076-9 (Version None)
Quarter: 2008Q3

REPORT INFORMATION
  Report Type: 
  Country: None (occurrence: None)
  Receive Date: 20080711
  Receipt Date: 20080430
  Transmission Date: 20090109
  Serious: No
  Sender: FDA-Public Use
  Company Number: 2008BM000100

PATIENT
  Age: 11 Year
  Sex: Female
  Weight: 29.9374 kg

DRUGS (1)
  1. KUVAN [Suspect]
     Indication: PHENYLKETONURIA
     Dosage: 600 MG;QD;PO
     Route: 048
     Dates: start: 20080301

REACTIONS (1)
  - SUNBURN [None]
